FAERS Safety Report 5263720-5 (Version None)
Quarter: 2007Q1

REPORT INFORMATION
  Report Type: 
  Country: None (occurrence: None)
  Receive Date: 20061213
  Receipt Date: 20040610
  Transmission Date: 20070707
  Serious: Yes (Hospitalization)
  Sender: FDA-Public Use
  Company Number: 2004UW12039

PATIENT
  Age: 59 Year
  Sex: Female
  Weight: 77.5651 kg

DRUGS (3)
  1. IRESSA [Suspect]
     Indication: NON-SMALL CELL LUNG CANCER
     Dosage: 250 MG DAILY PO
     Route: 048
  2. LASIX [Concomitant]
  3. DIGOXIN [Concomitant]

REACTIONS (1)
  - RASH PUSTULAR [None]
